FAERS Safety Report 14690769 (Version 2)
Quarter: 2018Q2

REPORT INFORMATION
  Report Type: Report from Study
  Country: JP (occurrence: JP)
  Receive Date: 20180328
  Receipt Date: 20180410
  Transmission Date: 20180711
  Serious: Yes (Other)
  Sender: FDA-Public Use
  Company Number: JP-MYLANLABS-2018M1018761

PATIENT
  Age: 90 Year

DRUGS (2)
  1. TEMOZOLOMIDE. [Suspect]
     Active Substance: TEMOZOLOMIDE
     Indication: GLIOMA
     Dosage: BETWEEN DAYS 1 (2) AND 5 (6) IN 28-DAY CYCLE AT A DOSE OF 150-200 MG/M2
     Route: 065
  2. BEVACIZUMAB. [Suspect]
     Active Substance: BEVACIZUMAB
     Indication: GLIOMA
     Dosage: ON DAYS 1 AND 15 IN THE FIRST 28-DAY CYCLE AT A DOSE OF 10 MG/KG.
     Route: 065

REACTIONS (2)
  - Drug administration error [Unknown]
  - Hepatic function abnormal [Unknown]
